FAERS Safety Report 14641940 (Version 1)
Quarter: 2018Q1

REPORT INFORMATION
  Report Type: Spontaneous
  Country: ES (occurrence: ES)
  Receive Date: 20180315
  Receipt Date: 20180315
  Transmission Date: 20180509
  Serious: Yes (Congenital Anomaly)
  Sender: FDA-Public Use
  Company Number: ES-SA-2018SA073789

PATIENT
  Sex: Male
  Weight: 3.4 kg

DRUGS (6)
  1. NOVORAPID [Suspect]
     Active Substance: INSULIN ASPART
     Indication: TYPE 1 DIABETES MELLITUS
     Route: 063
     Dates: start: 20161026
  2. LANTUS [Suspect]
     Active Substance: INSULIN GLARGINE
     Indication: MATERNAL EXPOSURE TIMING UNSPECIFIED
     Route: 064
     Dates: start: 20160128, end: 20161026
  3. NOVORAPID [Suspect]
     Active Substance: INSULIN ASPART
     Indication: TYPE 1 DIABETES MELLITUS
     Route: 064
     Dates: start: 20160128, end: 20161026
  4. LANTUS [Suspect]
     Active Substance: INSULIN GLARGINE
     Indication: MATERNAL EXPOSURE TIMING UNSPECIFIED
     Route: 065
  5. NOVORAPID [Suspect]
     Active Substance: INSULIN ASPART
     Indication: TYPE 1 DIABETES MELLITUS
  6. LANTUS [Suspect]
     Active Substance: INSULIN GLARGINE
     Indication: MATERNAL EXPOSURE TIMING UNSPECIFIED
     Route: 063
     Dates: start: 20161026

REACTIONS (4)
  - Hypoglycaemia neonatal [Recovered/Resolved]
  - Exposure via breast milk [Unknown]
  - Foetal exposure during pregnancy [Unknown]
  - Dacryostenosis congenital [Recovered/Resolved]

NARRATIVE: CASE EVENT DATE: 20161026
